FAERS Safety Report 8121211-8 (Version None)
Quarter: 2012Q1

REPORT INFORMATION
  Report Type: 
  Country: None (occurrence: None)
  Receive Date: 20120203
  Receipt Date: 20120123
  Transmission Date: 20120608
  Serious: Yes (Other)
  Sender: FDA-Public Use
  Company Number: 2012P1003323

PATIENT
  Age: 58 Year
  Sex: Female

DRUGS (3)
  1. QUETIAPINE [Suspect]
  2. HYDROCHLOROTHIAZIDE [Suspect]
  3. CITALOPRAM HYDROBROMIDE [Suspect]

REACTIONS (4)
  - BLOOD MAGNESIUM DECREASED [None]
  - ELECTROCARDIOGRAM QT PROLONGED [None]
  - TORSADE DE POINTES [None]
  - BLOOD POTASSIUM DECREASED [None]
